FAERS Safety Report 21068754 (Version 1)
Quarter: 2022Q3

REPORT INFORMATION
  Report Type: Spontaneous
  Country: US (occurrence: US)
  Receive Date: 20220712
  Receipt Date: 20220712
  Transmission Date: 20221027
  Serious: Yes (Disabling, Other)
  Sender: FDA-Public Use
  Company Number: US-GLAXOSMITHKLINE-US2022AMR103746

PATIENT

DRUGS (5)
  1. SUMATRIPTAN SUCCINATE [Suspect]
     Active Substance: SUMATRIPTAN SUCCINATE
     Indication: Headache
     Dosage: UNK
  2. NURTEC ODT [Suspect]
     Active Substance: RIMEGEPANT SULFATE
     Indication: Headache
     Dosage: UNK
  3. AJOVY [Suspect]
     Active Substance: FREMANEZUMAB-VFRM
     Indication: Headache
     Dosage: UNK
     Route: 042
  4. UBRELVY [Suspect]
     Active Substance: UBROGEPANT
     Indication: Headache
     Dosage: UNK
  5. LASMIDITAN SUCCINATE [Concomitant]
     Active Substance: LASMIDITAN SUCCINATE
     Indication: Product used for unknown indication
     Dosage: UNK

REACTIONS (3)
  - Ischaemic stroke [Recovered/Resolved with Sequelae]
  - Brain injury [Not Recovered/Not Resolved]
  - Aura [Recovered/Resolved]
